FAERS Safety Report 7221120-2 (Version None)
Quarter: 2011Q1

REPORT INFORMATION
  Report Type: 
  Country: None (occurrence: None)
  Receive Date: 20110112
  Receipt Date: 20110108
  Transmission Date: 20110831
  Serious: Yes (Other)
  Sender: FDA-Public Use
  Company Number: US-PFIZER INC-2011005103

PATIENT
  Sex: Male
  Weight: 73.923 kg

DRUGS (6)
  1. ASCORBIC ACID [Concomitant]
     Dosage: UNK
  2. LOVASTATIN [Concomitant]
     Dosage: UNK
  3. VITAMIN E [Concomitant]
     Dosage: UNK
  4. VITAMIN D [Concomitant]
     Dosage: UNK
  5. CORDARONE [Suspect]
     Indication: HEART RATE IRREGULAR
     Dosage: 200 MG, DAILY
     Dates: start: 20100301
  6. CALCIUM [Concomitant]
     Dosage: UNK

REACTIONS (3)
  - THYROID DISORDER [None]
  - DIARRHOEA [None]
  - FATIGUE [None]
